FAERS Safety Report 8588190-0 (Version None)
Quarter: 2012Q3

REPORT INFORMATION
  Report Type: 
  Country: None (occurrence: None)
  Receive Date: 20120731
  Receipt Date: 20120724
  Transmission Date: 20120928
  Serious: Yes (Life-Threatening, Disabling, Other)
  Sender: FDA-Public Use
  Company Number: US-ZYDUS-000563

PATIENT
  Age: 49 Year
  Sex: Male

DRUGS (2)
  1. METFFORMIN HYDROCHLORIDE [Suspect]
     Indication: SUICIDE ATTEMPT
     Dosage: 52.00 G/ORAL
     Route: 048
  2. GLYBURIDE [Concomitant]

REACTIONS (7)
  - DEAFNESS [None]
  - HYPOTENSION [None]
  - INTENTIONAL OVERDOSE [None]
  - SUICIDE ATTEMPT [None]
  - RESPIRATORY FAILURE [None]
  - HYPOGLYCAEMIA [None]
  - LACTIC ACIDOSIS [None]
